FAERS Safety Report 8157934-4 (Version None)
Quarter: 2012Q1

REPORT INFORMATION
  Report Type: 
  Country: None (occurrence: None)
  Receive Date: 20120222
  Receipt Date: 20120213
  Transmission Date: 20120608
  Serious: Yes (Hospitalization, Other)
  Sender: FDA-Public Use
  Company Number: PHHY2011BR87077

PATIENT
  Sex: Female
  Weight: 75 kg

DRUGS (6)
  1. CORTICOSTEROIDS [Concomitant]
  2. BUDESONIDE [Concomitant]
  3. FLUIMICIL [Concomitant]
  4. NASONEX [Concomitant]
  5. XOLAIR [Suspect]
     Indication: ASTHMA
     Dosage: DOSE OF AN APPLICATION EACH 15 DAYS
  6. FORMOTEROL FUMARATE [Suspect]
     Indication: ASTHMA
     Dosage: EVERY 12 HOURS

REACTIONS (8)
  - ABDOMINAL DISTENSION [None]
  - DYSPNOEA [None]
  - CHEST PAIN [None]
  - ASTHMA [None]
  - WHEEZING [None]
  - FATIGUE [None]
  - MALAISE [None]
  - WEIGHT INCREASED [None]
